FAERS Safety Report 5291414-9 (Version None)
Quarter: 2007Q2

REPORT INFORMATION
  Report Type: 
  Country: None (occurrence: None)
  Receive Date: 20070402
  Receipt Date: 20070322
  Transmission Date: 20071010
  Serious: Yes (Hospitalization)
  Sender: FDA-Public Use
  Company Number: 2007SP005360

PATIENT
  Age: 57 Year
  Sex: Male

DRUGS (1)
  1. TEMOZOLOMIDE (S-P) (TEMOZOLOMIDE [Suspect]
     Indication: GLIOBLASTOMA
     Dosage: 250 MG;QD;PO
     Route: 048
     Dates: start: 20070101, end: 20070201

REACTIONS (7)
  - COUGH [None]
  - CYANOSIS [None]
  - DYSPNOEA [None]
  - EOSINOPHIL PERCENTAGE INCREASED [None]
  - LUNG DISORDER [None]
  - LYMPHOCYTE PERCENTAGE INCREASED [None]
  - NEUTROPHIL PERCENTAGE DECREASED [None]
